FAERS Safety Report 4844773-2 (Version None)
Quarter: 2005Q4

REPORT INFORMATION
  Report Type: 
  Country: None (occurrence: None)
  Receive Date: 20051201
  Receipt Date: 20051201
  Transmission Date: 20060501
  Serious: Yes (Other)
  Sender: FDA-Public Use
  Company Number: None

PATIENT
  Sex: Female
  Weight: 104.3273 kg

DRUGS (4)
  1. MS CONTIN [Suspect]
     Indication: EXOSTOSIS
     Dosage: 2 MG IV 1X
     Route: 042
     Dates: start: 20051005
  2. MS CONTIN [Suspect]
     Indication: NECK PAIN
     Dosage: 2 MG IV 1X
     Route: 042
     Dates: start: 20051005
  3. METHADONE [Suspect]
     Indication: EXOSTOSIS
     Dosage: 10 MG PO Q ID
     Route: 048
     Dates: start: 20051117
  4. METHADONE [Suspect]
     Indication: NECK PAIN
     Dosage: 10 MG PO Q ID
     Route: 048
     Dates: start: 20051117

REACTIONS (4)
  - ABDOMINAL PAIN UPPER [None]
  - DYSPNOEA [None]
  - RASH [None]
  - TACHYCARDIA [None]
